FAERS Safety Report 13175255 (Version 1)
Quarter: 2017Q1

REPORT INFORMATION
  Report Type: Spontaneous
  Country: US (occurrence: US)
  Receive Date: 20170201
  Receipt Date: 20170201
  Transmission Date: 20170428
  Serious: Yes (Hospitalization, Other)
  Sender: FDA-Public Use
  Company Number: US-009507513-1701USA014324

PATIENT
  Age: 30 Year
  Sex: Female

DRUGS (1)
  1. NUVARING [Suspect]
     Active Substance: ETHINYL ESTRADIOL\ETONOGESTREL
     Indication: CONTRACEPTION
     Dosage: UNK
     Dates: start: 201302

REACTIONS (11)
  - Ventricular fibrillation [Unknown]
  - Myocardial infarction [Unknown]
  - Acute kidney injury [Unknown]
  - Atherosclerotic plaque rupture [Unknown]
  - Angina pectoris [Unknown]
  - Pneumonia aspiration [Unknown]
  - Hypokinesia [Unknown]
  - Pulmonary oedema [Unknown]
  - Hypoxic-ischaemic encephalopathy [Unknown]
  - Catheter site abscess [Unknown]
  - Coronary artery disease [Unknown]

NARRATIVE: CASE EVENT DATE: 201406
